FAERS Safety Report 11457376 (Version 2)
Quarter: 2015Q3

REPORT INFORMATION
  Report Type: Spontaneous
  Country: FR (occurrence: FR)
  Receive Date: 20150904
  Receipt Date: 20150909
  Transmission Date: 20151125
  Serious: Yes (Hospitalization)
  Sender: FDA-Public Use
  Company Number: US-ASTRAZENECA-2015SE84290

PATIENT
  Age: 65 Year
  Sex: Male

DRUGS (14)
  1. PARACETAMOL [Concomitant]
     Active Substance: ACETAMINOPHEN
  2. GENTALLINE [Concomitant]
     Active Substance: GENTAMICIN SULFATE
     Dates: end: 20150508
  3. INEXIUM [Suspect]
     Active Substance: ESOMEPRAZOLE
     Route: 048
     Dates: end: 20150527
  4. FENOFIBRATE. [Suspect]
     Active Substance: FENOFIBRATE
     Route: 048
     Dates: end: 20150527
  5. OXYNORM [Concomitant]
     Active Substance: OXYCODONE HYDROCHLORIDE
     Indication: PHANTOM PAIN
     Dates: start: 20150506
  6. COLCHICINE. [Suspect]
     Active Substance: COLCHICINE
     Indication: CHONDROCALCINOSIS
     Route: 048
     Dates: start: 20150517, end: 20150527
  7. CEFTRIAXONE SODIUM. [Suspect]
     Active Substance: CEFTRIAXONE SODIUM
     Route: 042
     Dates: start: 20150506, end: 20150527
  8. KARDEGIC [Concomitant]
     Active Substance: ASPIRIN LYSINE
  9. BI-TILDIEM [Concomitant]
     Active Substance: DILTIAZEM
  10. TOPALGIC [Concomitant]
     Active Substance: TRAMADOL
  11. LYRICA [Suspect]
     Active Substance: PREGABALIN
     Indication: PHANTOM PAIN
     Route: 048
     Dates: start: 20150506, end: 20150527
  12. FRAGMINE [Concomitant]
     Active Substance: DALTEPARIN SODIUM
  13. RIVOTRIL [Concomitant]
     Active Substance: CLONAZEPAM
     Indication: PHANTOM PAIN
     Dates: start: 20150506
  14. OGAST [Concomitant]
     Active Substance: LANSOPRAZOLE

REACTIONS (2)
  - Neutropenia [Recovered/Resolved]
  - Chondrocalcinosis [Unknown]

NARRATIVE: CASE EVENT DATE: 20150517
